FAERS Safety Report 7991178-1 (Version None)
Quarter: 2011Q4

REPORT INFORMATION
  Report Type: 
  Country: None (occurrence: None)
  Receive Date: 20111219
  Receipt Date: 20111209
  Transmission Date: 20120403
  Serious: Yes (Hospitalization)
  Sender: FDA-Public Use
  Company Number: US-GLAXOSMITHKLINE-A0425948A

PATIENT
  Age: 69 Year
  Sex: Male

DRUGS (6)
  1. INSULIN [Concomitant]
  2. PRINZIDE [Concomitant]
  3. GLUCOVANCE [Concomitant]
  4. AVANDIA [Suspect]
     Indication: TYPE 2 DIABETES MELLITUS
     Dosage: 4MG TWICE PER DAY
     Route: 048
     Dates: end: 20070101
  5. ZOCOR [Concomitant]
  6. ASPIRIN [Concomitant]

REACTIONS (5)
  - CARDIAC DISORDER [None]
  - WEIGHT INCREASED [None]
  - OSTEOGENESIS IMPERFECTA [None]
  - CORONARY ARTERY DISEASE [None]
  - FRACTURE [None]
